FAERS Safety Report 11865350 (Version 2)
Quarter: 2015Q4

REPORT INFORMATION
  Report Type: Report from Study
  Country: US (occurrence: US)
  Receive Date: 20151223
  Receipt Date: 20151228
  Transmission Date: 20160305
  Serious: Yes (Other)
  Sender: FDA-Public Use
  Company Number: US-GILEAD-2015-0189320

PATIENT
  Age: 49 Year
  Sex: Female

DRUGS (1)
  1. AMBRISENTAN [Suspect]
     Active Substance: AMBRISENTAN
     Indication: PRODUCT USED FOR UNKNOWN INDICATION
     Dosage: 5 MG, QD
     Route: 065
     Dates: start: 20130809

REACTIONS (9)
  - Nausea [Unknown]
  - Pneumonia [Unknown]
  - Chills [Unknown]
  - Dyspnoea [Unknown]
  - Back pain [Unknown]
  - Pyrexia [Unknown]
  - Fatigue [Unknown]
  - Bronchitis [Unknown]
  - Vomiting [Unknown]
